FAERS Safety Report 5720544-X (Version None)
Quarter: 2008Q2

REPORT INFORMATION
  Report Type: 
  Country: None (occurrence: None)
  Receive Date: 20080429
  Receipt Date: 20080415
  Transmission Date: 20081010
  Serious: Yes (Other)
  Sender: FDA-Public Use
  Company Number: TW-RANBAXY-2008RR-14473

PATIENT

DRUGS (3)
  1. ENALAPRIL 20MG [Suspect]
     Dosage: UNK
     Dates: start: 20041201
  2. TAMSULOSIN HCL [Concomitant]
     Dosage: UNK
     Dates: start: 20060601, end: 20061101
  3. TERAZOSIN HCL [Concomitant]
     Dosage: UNK
     Dates: start: 20061101, end: 20061201

REACTIONS (1)
  - GRANULOMA [None]
